FAERS Safety Report 9691953 (Version 2)
Quarter: 2013Q4

REPORT INFORMATION
  Report Type: Other
  Country: US (occurrence: US)
  Receive Date: 20131118
  Receipt Date: 20131203
  Transmission Date: 20140711
  Serious: No
  Sender: FDA-Public Use
  Company Number: US-RANBAXY-2013US-75079

PATIENT
  Sex: Female

DRUGS (4)
  1. ABSORICA [Suspect]
     Indication: PRODUCT USED FOR UNKNOWN INDICATION
     Dosage: 40 MG, QD (AM)
     Route: 065
     Dates: start: 20130625, end: 20131104
  2. ABSORICA [Suspect]
     Indication: PRODUCT USED FOR UNKNOWN INDICATION
     Dosage: 20 MG, QD (PM)
     Route: 065
     Dates: start: 20130625, end: 20131104
  3. ALLEGRA [Concomitant]
     Indication: PRODUCT USED FOR UNKNOWN INDICATION
     Dosage: UNK
     Route: 065
  4. MIRENA [Concomitant]
     Indication: CONTRACEPTION
     Dosage: UNK
     Route: 015

REACTIONS (1)
  - No adverse event [Unknown]
